FAERS Safety Report 18500711 (Version 1)
Quarter: 2020Q4

REPORT INFORMATION
  Report Type: Spontaneous
  Country: US (occurrence: US)
  Receive Date: 20201113
  Receipt Date: 20201113
  Transmission Date: 20210114
  Serious: Yes (Hospitalization)
  Sender: FDA-Public Use
  Company Number: None

PATIENT
  Age: 69 Year
  Sex: Female
  Weight: 90.71 kg

DRUGS (7)
  1. DOMPERIDONE [Suspect]
     Active Substance: DOMPERIDONE
     Indication: IMPAIRED GASTRIC EMPTYING
     Route: 048
     Dates: start: 20141117
  2. ROSUVASTATIN. [Concomitant]
     Active Substance: ROSUVASTATIN
  3. PROAIR HFA [Concomitant]
     Active Substance: ALBUTEROL SULFATE
  4. FAMOTIDINE. [Concomitant]
     Active Substance: FAMOTIDINE
  5. LISINOPRIL. [Concomitant]
     Active Substance: LISINOPRIL
  6. NOVOLLIN 70/30 [Concomitant]
  7. PANTOPRAZOLE [Concomitant]
     Active Substance: PANTOPRAZOLE

REACTIONS (3)
  - Pulmonary embolism [None]
  - Sialoadenitis [None]
  - Parotitis [None]

NARRATIVE: CASE EVENT DATE: 20201104
